FAERS Safety Report 5658348-9 (Version None)
Quarter: 2008Q1

REPORT INFORMATION
  Report Type: 
  Country: None (occurrence: None)
  Receive Date: 20080310
  Receipt Date: 20070202
  Transmission Date: 20080703
  Serious: No
  Sender: FDA-Public Use
  Company Number: US-BAYER-200710393BCC

PATIENT
  Sex: Female

DRUGS (2)
  1. ALEVE [Suspect]
     Indication: MUSCULOSKELETAL PAIN
     Dosage: AS USED: 440/220 MG  UNIT DOSE: 220 MG
     Route: 048
  2. LEVOTHROID [Concomitant]

REACTIONS (1)
  - STOMACH DISCOMFORT [None]
